FAERS Safety Report 10637527 (Version 3)
Quarter: 2015Q1

REPORT INFORMATION
  Report Type: Spontaneous
  Country: DE (occurrence: DE)
  Receive Date: 20141208
  Receipt Date: 20150211
  Transmission Date: 20150720
  Serious: Yes (Other)
  Sender: FDA-Public Use
  Company Number: DE-SHIRE-DE201408504

PATIENT
  Age: 8 Year
  Sex: Male
  Weight: 30.1 kg

DRUGS (3)
  1. ELVANSE [Suspect]
     Active Substance: LISDEXAMFETAMINE DIMESYLATE
     Indication: PRODUCT USED FOR UNKNOWN INDICATION
     Dosage: 30 MG, 1X/DAY:QD
     Route: 048
     Dates: start: 201306, end: 2013
  2. ELVANSE [Suspect]
     Active Substance: LISDEXAMFETAMINE DIMESYLATE
     Dosage: 50 MG, 1X/DAY:QD
     Route: 048
     Dates: start: 2013, end: 2014
  3. ELVANSE [Suspect]
     Active Substance: LISDEXAMFETAMINE DIMESYLATE
     Dosage: 50 MG, 1X/WEEK
     Dates: start: 201410

REACTIONS (10)
  - Decreased appetite [Recovered/Resolved]
  - Insomnia [Recovered/Resolved]
  - Dizziness [Recovered/Resolved]
  - Sudden hearing loss [Recovered/Resolved]
  - Weight gain poor [Recovered/Resolved]
  - Abdominal pain [Recovered/Resolved]
  - Growth retardation [Recovered/Resolved]
  - Viral infection [Unknown]
  - Headache [Recovered/Resolved]
  - Mood altered [Recovered/Resolved]

NARRATIVE: CASE EVENT DATE: 201306
